FAERS Safety Report 24803760 (Version 1)
Quarter: 2025Q1

REPORT INFORMATION
  Report Type: Spontaneous
  Country: ES (occurrence: ES)
  Receive Date: 20250103
  Receipt Date: 20250103
  Transmission Date: 20250408
  Serious: Yes (Other)
  Sender: RANBAXY
  Company Number: ES-SUN PHARMACEUTICAL INDUSTRIES LTD-2024RR-487554

PATIENT
  Age: 66 Year
  Sex: Female

DRUGS (5)
  1. SUNITINIB [Suspect]
     Active Substance: SUNITINIB
     Indication: Paraganglion neoplasm malignant
     Dosage: 37.5 MILLIGRAM, DAILY
     Route: 065
     Dates: start: 201512
  2. TEMOZOLOMIDE [Suspect]
     Active Substance: TEMOZOLOMIDE
     Indication: Paraganglion neoplasm malignant
     Route: 065
     Dates: start: 201609
  3. VINCRISTINE [Suspect]
     Active Substance: VINCRISTINE
     Indication: Paraganglion neoplasm malignant
     Route: 065
     Dates: start: 201601
  4. CYCLOPHOSPHAMIDE [Suspect]
     Active Substance: CYCLOPHOSPHAMIDE
     Indication: Paraganglion neoplasm malignant
     Route: 065
     Dates: start: 201601
  5. DACARBAZINE [Suspect]
     Active Substance: DACARBAZINE
     Indication: Paraganglion neoplasm malignant
     Route: 065
     Dates: start: 201601

REACTIONS (3)
  - Therapeutic product effect incomplete [Unknown]
  - Haematotoxicity [Unknown]
  - Drug intolerance [Unknown]
